FAERS Safety Report 20709953 (Version 1)
Quarter: 2022Q2

REPORT INFORMATION
  Report Type: Spontaneous
  Country: US (occurrence: US)
  Receive Date: 20220414
  Receipt Date: 20220414
  Transmission Date: 20220720
  Serious: No
  Sender: FDA-Public Use
  Company Number: US-TOPROL-2021000203

PATIENT
  Age: 39 Year
  Sex: Male
  Weight: 110.25 kg

DRUGS (3)
  1. METOPROLOL SUCCINATE [Suspect]
     Active Substance: METOPROLOL SUCCINATE
     Indication: Hypertension
     Dosage: 1 TABLET ONCE DAILY IN THE MORNING
     Route: 065
  2. Dr. Reddy^s metoprolol succinate [Concomitant]
     Indication: Hypertension
     Dosage: 1 TABLET ONCE DAILY IN THE MORNING
     Route: 065
     Dates: start: 20210818, end: 20210822
  3. LISINOPRIL [Concomitant]
     Active Substance: LISINOPRIL
     Indication: Product used for unknown indication
     Dosage: IN THE MORNING
     Route: 065

REACTIONS (2)
  - Expired product administered [Unknown]
  - Product use in unapproved indication [Unknown]
